FAERS Safety Report 9404636 (Version 1)
Quarter: 2013Q3

REPORT INFORMATION
  Report Type: Spontaneous
  Country: DE (occurrence: DE)
  Receive Date: 20130717
  Receipt Date: 20130717
  Transmission Date: 20140515
  Serious: Yes (Other)
  Sender: FDA-Public Use
  Company Number: PHHY2013DE058005

PATIENT
  Age: 75 Year
  Sex: Female

DRUGS (2)
  1. FEMARA [Suspect]
     Indication: BREAST CANCER
     Dosage: 2.5 MG, DAILY
     Route: 048
     Dates: start: 20101026
  2. FEMARA [Suspect]
     Dosage: 2.5 MG, EVERY 2 DAY
     Route: 048
     Dates: start: 20110125, end: 20110212

REACTIONS (4)
  - Osteoarthritis [Unknown]
  - Osteoporosis [Unknown]
  - Back pain [Unknown]
  - Arthralgia [Unknown]
